FAERS Safety Report 5102948-1 (Version None)
Quarter: 2006Q3

REPORT INFORMATION
  Report Type: 
  Country: None (occurrence: None)
  Receive Date: 20060908
  Receipt Date: 20060830
  Transmission Date: 20061208
  Serious: Yes (Hospitalization)
  Sender: FDA-Public Use
  Company Number: 2006104921

PATIENT
  Age: 9 Year
  Sex: Female
  Weight: 31.7518 kg

DRUGS (2)
  1. CHILDREN'S PEDIACARE MULTI-SYMPTOM COLD (PSEUDOEPHEDRINE, DEXTROMETHOR [Suspect]
     Indication: COUGH
     Dosage: 2 TEASPOONS ONCE, ORAL
     Route: 048
     Dates: start: 20060829, end: 20060829
  2. BENZYLPENICILLIN SODIUM (BENZYLPENICILLIN SODIUM) [Concomitant]

REACTIONS (3)
  - DRUG HYPERSENSITIVITY [None]
  - VISUAL ACUITY REDUCED [None]
  - VISUAL DISTURBANCE [None]
